FAERS Safety Report 11152924 (Version 2)
Quarter: 2015Q3

REPORT INFORMATION
  Report Type: Spontaneous
  Country: FR (occurrence: FR)
  Receive Date: 20150601
  Receipt Date: 20150707
  Transmission Date: 20151125
  Serious: Yes (Hospitalization)
  Sender: FDA-Public Use
  Company Number: FR-009507513-1505FRA013626

PATIENT
  Age: 33 Year
  Sex: Female

DRUGS (3)
  1. ORGALUTRAN [Suspect]
     Active Substance: GANIRELIX ACETATE
     Dosage: 1 DF, QD
     Route: 058
     Dates: start: 20150406, end: 20150413
  2. FOSTIMON [Suspect]
     Active Substance: UROFOLLITROPIN
     Dosage: 187.5 IU QD
     Route: 058
     Dates: start: 20150403, end: 20150413
  3. OVITRELLE [Suspect]
     Active Substance: CHORIOGONADOTROPIN ALFA
     Dosage: 1 DF, ONCE
     Route: 058
     Dates: start: 20150413

REACTIONS (5)
  - Ascites [Recovered/Resolved]
  - Oliguria [Recovered/Resolved]
  - Dyspnoea [Recovered/Resolved]
  - Transaminases increased [Recovered/Resolved]
  - Ovarian hyperstimulation syndrome [Recovered/Resolved]

NARRATIVE: CASE EVENT DATE: 20150417
